FAERS Safety Report 7821108-4 (Version None)
Quarter: 2011Q4

REPORT INFORMATION
  Report Type: 
  Country: None (occurrence: None)
  Receive Date: 20111018
  Receipt Date: 20111014
  Transmission Date: 20120403
  Serious: No
  Sender: FDA-Public Use
  Company Number: US-PFIZER INC-2011246884

PATIENT
  Sex: Female
  Weight: 45.351 kg

DRUGS (3)
  1. ROBITUSSIN COLD AND CONGESTION TABLETS [Concomitant]
     Dosage: UNK
  2. ADVIL COLD AND SINUS [Suspect]
     Indication: NASOPHARYNGITIS
     Dosage: 200 MG, UNK
     Route: 048
     Dates: start: 20111013, end: 20111014
  3. ADVIL COLD AND SINUS [Suspect]
     Indication: NASAL CONGESTION

REACTIONS (2)
  - SKIN DISORDER [None]
  - HYPERSENSITIVITY [None]
